FAERS Safety Report 5006472-6 (Version None)
Quarter: 2006Q2

REPORT INFORMATION
  Report Type: 
  Country: None (occurrence: None)
  Receive Date: 20060516
  Receipt Date: 20060505
  Transmission Date: 20061013
  Serious: Yes (Hospitalization)
  Sender: FDA-Public Use
  Company Number: FR200605001642

PATIENT
  Age: 50 Year
  Sex: Female
  Weight: 66 kg

DRUGS (5)
  1. GEMZAR [Suspect]
     Indication: UTERINE CANCER
     Dosage: 1690 MG, OTHER, INTRAVENOUS
     Route: 042
     Dates: start: 20060101, end: 20060217
  2. ELOXATIN [Concomitant]
  3. PLITICAN (ALIZAPRIDE HYDROCHLORIDE) [Concomitant]
  4. SOLU-MEDROL [Concomitant]
  5. ZOFRAN [Concomitant]

REACTIONS (4)
  - CHEST DISCOMFORT [None]
  - HYPERHIDROSIS [None]
  - LARYNGOSPASM [None]
  - PALLOR [None]
